FAERS Safety Report 4450031-0 (Version None)
Quarter: 2004Q3

REPORT INFORMATION
  Report Type: 
  Country: None (occurrence: None)
  Receive Date: 20040804
  Receipt Date: 20031104
  Transmission Date: 20050211
  Serious: Yes (Other)
  Sender: FDA-Public Use
  Company Number: 203182

PATIENT
  Age: 51 Year
  Sex: Female

DRUGS (2)
  1. HERCEPTIN [Suspect]
     Indication: BREAST CANCER METASTATIC
     Dosage: 1/WEEK, INTRAVENOUS
     Route: 042
     Dates: start: 19990401
  2. GEMZAR [Concomitant]

REACTIONS (1)
  - BREAST CANCER METASTATIC [None]
